FAERS Safety Report 8330264-3 (Version None)
Quarter: 2012Q2

REPORT INFORMATION
  Report Type: 
  Country: None (occurrence: None)
  Receive Date: 20120502
  Receipt Date: 20120417
  Transmission Date: 20120825
  Serious: Yes (Other)
  Sender: FDA-Public Use
  Company Number: CHPA2012US009629

PATIENT
  Age: 24 Year
  Sex: Male

DRUGS (2)
  1. BENEFIBER UNKNOWN [Suspect]
     Indication: IRRITABLE BOWEL SYNDROME
     Dosage: A SCOOP FULL A DAY
     Route: 048
     Dates: start: 20100101
  2. LORAZEPAM [Concomitant]
     Indication: PAIN
     Dosage: UNK, UNK

REACTIONS (2)
  - OFF LABEL USE [None]
  - GALLBLADDER NON-FUNCTIONING [None]
